FAERS Safety Report 9194070 (Version 1)
Quarter: 2013Q1

REPORT INFORMATION
  Report Type: Report from Study
  Country: US (occurrence: US)
  Receive Date: 20130327
  Receipt Date: 20130327
  Transmission Date: 20140127
  Serious: Yes (Other)
  Sender: FDA-Public Use
  Company Number: US-US-EMD SERONO, INC.-7201157

PATIENT
  Age: 63 None
  Sex: Female

DRUGS (1)
  1. REBIF [Suspect]
     Indication: MULTIPLE SCLEROSIS
     Route: 058
     Dates: start: 20070625

REACTIONS (4)
  - Bile duct stone [Not Recovered/Not Resolved]
  - Procedural haemorrhage [Unknown]
  - Neuralgia [Unknown]
  - Abdominal discomfort [Not Recovered/Not Resolved]
